FAERS Safety Report 4621464-4 (Version None)
Quarter: 2005Q2

REPORT INFORMATION
  Report Type: 
  Country: None (occurrence: None)
  Receive Date: 20050317
  Receipt Date: 20040302
  Transmission Date: 20051028
  Serious: Yes (Other)
  Sender: FDA-Public Use
  Company Number: PHEH2004US00813

PATIENT
  Age: 78 Year
  Sex: Female

DRUGS (3)
  1. TRILEPTAL [Suspect]
     Indication: BIPOLAR DISORDER
     Dosage: 150 MG BID ORAL
     Route: 048
     Dates: start: 20040105, end: 20040112
  2. LITHIUM [Concomitant]
  3. TRAZODONE [Concomitant]

REACTIONS (3)
  - BLOOD PRESSURE INCREASED [None]
  - FEELING ABNORMAL [None]
  - HEART RATE INCREASED [None]
